FAERS Safety Report 5369418-7 (Version None)
Quarter: 2007Q2

REPORT INFORMATION
  Report Type: 
  Country: None (occurrence: None)
  Receive Date: 20070620
  Receipt Date: 20070604
  Transmission Date: 20071010
  Serious: Yes (Hospitalization)
  Sender: FDA-Public Use
  Company Number: 8023977

PATIENT
  Age: 45 Year
  Sex: Male

DRUGS (5)
  1. KEPPRA [Suspect]
     Indication: EPILEPSY
     Dosage: 1000 MG 1/D
     Dates: start: 20050301
  2. KEPPRA [Suspect]
     Indication: EPILEPSY
     Dosage: 2000 MG 1/D
  3. TIMOX /00596701/ [Concomitant]
  4. TIMOX /00596701/ [Concomitant]
  5. VALPROATE SODIUM [Concomitant]

REACTIONS (17)
  - ANOSMIA [None]
  - ANXIETY [None]
  - CONDITION AGGRAVATED [None]
  - CONVULSION [None]
  - DEPRESSION [None]
  - DISTURBANCE IN ATTENTION [None]
  - DYSGEUSIA [None]
  - FEELING ABNORMAL [None]
  - GRAND MAL CONVULSION [None]
  - HEADACHE [None]
  - HEARING IMPAIRED [None]
  - HYPERSENSITIVITY [None]
  - MEMORY IMPAIRMENT [None]
  - MENTAL DISORDER [None]
  - SUICIDAL IDEATION [None]
  - TACHYCARDIA [None]
  - TINNITUS [None]
